FAERS Safety Report 8520645-7 (Version None)
Quarter: 2012Q3

REPORT INFORMATION
  Report Type: 
  Country: None (occurrence: None)
  Receive Date: 20120719
  Receipt Date: 20120711
  Transmission Date: 20120928
  Serious: Yes (Other)
  Sender: FDA-Public Use
  Company Number: GB-009507513-1207GBR003626

PATIENT

DRUGS (8)
  1. RAMIPRIL [Concomitant]
     Indication: HYPERTENSION
  2. LERCANIDIPINE [Concomitant]
     Indication: HYPERTENSION
     Dosage: 10 MG, QD
     Route: 048
     Dates: start: 20060127
  3. NAPROXEN [Concomitant]
     Indication: ARTHRITIS
     Dosage: 50 MG, BID
     Route: 048
     Dates: start: 20081204
  4. EZETIMIBE [Suspect]
     Indication: HYPERCHOLESTEROLAEMIA
     Dosage: 10 MG, UNK
     Route: 048
     Dates: start: 20110613, end: 20110901
  5. ATENOLOL [Concomitant]
     Indication: HYPERTENSION
     Dosage: 50 MG, QD
     Route: 048
     Dates: start: 20040227
  6. RAMIPRIL [Concomitant]
     Indication: RENAL FAILURE CHRONIC
     Dosage: 2.5 MG, QD
     Route: 048
     Dates: start: 20041026
  7. RAMIPRIL [Concomitant]
     Indication: DIABETES MELLITUS
  8. RANITIDINE [Concomitant]
     Indication: HYPERCHLORHYDRIA
     Dosage: 150 MG, BID
     Route: 048
     Dates: start: 20041026

REACTIONS (1)
  - ALOPECIA TOTALIS [None]
